FAERS Safety Report 7419393-6 (Version None)
Quarter: 2011Q2

REPORT INFORMATION
  Report Type: 
  Country: None (occurrence: None)
  Receive Date: 20110415
  Receipt Date: 20110405
  Transmission Date: 20111010
  Serious: Yes (Other)
  Sender: FDA-Public Use
  Company Number: US-BAYER-2011-029672

PATIENT
  Age: 48 Year
  Sex: Female

DRUGS (1)
  1. AVELOX [Suspect]
     Indication: SINUSITIS
     Dosage: 400 MG, QD
     Dates: start: 20110401, end: 20110401

REACTIONS (3)
  - HYPERSENSITIVITY [None]
  - URTICARIA [None]
  - AURICULAR SWELLING [None]
